FAERS Safety Report 9220145 (Version 1)
Quarter: 2013Q2

REPORT INFORMATION
  Report Type: Spontaneous
  Country: US (occurrence: US)
  Receive Date: 20130409
  Receipt Date: 20130409
  Transmission Date: 20140414
  Serious: Yes (Other)
  Sender: FDA-Public Use
  Company Number: PHHY2013US033810

PATIENT
  Sex: Male

DRUGS (1)
  1. METOPROLOL [Suspect]
     Dosage: UNK UKN, UNK

REACTIONS (1)
  - Atrial fibrillation [Unknown]
